FAERS Safety Report 7536004-X (Version None)
Quarter: 2011Q2

REPORT INFORMATION
  Report Type: 
  Country: None (occurrence: None)
  Receive Date: 20110609
  Receipt Date: 20110603
  Transmission Date: 20111010
  Serious: Yes (Other)
  Sender: FDA-Public Use
  Company Number: US-PFIZER INC-2011040671

PATIENT
  Sex: Female

DRUGS (3)
  1. DIOVAN HCT [Concomitant]
     Indication: HYPERTENSION
     Dosage: 160/25 MG
     Dates: start: 20090601
  2. CHANTIX [Suspect]
     Indication: SMOKING CESSATION THERAPY
     Dosage: UNK
     Dates: start: 20100201
  3. MAG-OX [Concomitant]
     Indication: SUPPLEMENTATION THERAPY
     Dosage: 400 MG, UNK
     Dates: start: 20080201, end: 20110201

REACTIONS (2)
  - DEPRESSION [None]
  - SUICIDAL IDEATION [None]
